FAERS Safety Report 7350923-9 (Version None)
Quarter: 2011Q1

REPORT INFORMATION
  Report Type: 
  Country: None (occurrence: None)
  Receive Date: 20110314
  Receipt Date: 20110304
  Transmission Date: 20110831
  Serious: No
  Sender: FDA-Public Use
  Company Number: US-JNJFOC-20110204762

PATIENT
  Sex: Male
  Weight: 89.36 kg

DRUGS (11)
  1. FENTANYL-100 [Suspect]
     Indication: OSTEOPOROSIS
     Dosage: NDC: 0781-7244-55
     Route: 062
  2. OXYCODONE HCL [Concomitant]
     Indication: BREAKTHROUGH PAIN
     Route: 048
  3. MOTRIN [Concomitant]
     Indication: PAIN
     Route: 062
  4. FENTANYL-100 [Suspect]
     Indication: BONE PAIN
     Dosage: NDC: 0781-7244-55
     Route: 062
  5. AMOXICILLIN [Suspect]
     Indication: SINUSITIS
     Route: 048
  6. FENTANYL-100 [Suspect]
     Indication: ARTHRALGIA
     Route: 062
  7. FENTANYL-100 [Suspect]
     Indication: ARTHRALGIA
     Dosage: NDC: 0781-7244-55
     Route: 062
  8. FENTANYL-100 [Suspect]
     Indication: OSTEOPOROSIS
     Route: 062
  9. FENTANYL-100 [Suspect]
     Indication: BONE PAIN
     Route: 062
  10. NEURONTIN [Concomitant]
     Indication: NEURALGIA
     Route: 048
  11. OXYCONTIN [Concomitant]
     Indication: BREAKTHROUGH PAIN

REACTIONS (17)
  - DRUG EFFECT INCREASED [None]
  - ANXIETY [None]
  - PYREXIA [None]
  - WRONG TECHNIQUE IN DRUG USAGE PROCESS [None]
  - MALAISE [None]
  - POLLAKIURIA [None]
  - FEELING ABNORMAL [None]
  - INFLUENZA [None]
  - PRODUCT QUALITY ISSUE [None]
  - HYPERHIDROSIS [None]
  - SINUSITIS [None]
  - BODY HEIGHT DECREASED [None]
  - THERAPEUTIC RESPONSE DECREASED [None]
  - DIARRHOEA [None]
  - NEURALGIA [None]
  - DRUG INEFFECTIVE [None]
  - PAIN [None]
